FAERS Safety Report 5932146-0 (Version None)
Quarter: 2008Q4

REPORT INFORMATION
  Report Type: 
  Country: None (occurrence: None)
  Receive Date: 20081022
  Receipt Date: 20081008
  Transmission Date: 20090506
  Serious: Yes (Other)
  Sender: FDA-Public Use
  Company Number: US024840

PATIENT
  Age: 74 Year
  Sex: Male

DRUGS (3)
  1. TRISENOX [Suspect]
     Indication: ACUTE PROMYELOCYTIC LEUKAEMIA
     Dosage: INTRAVENOUS
     Route: 042
     Dates: start: 20080909, end: 20080913
  2. TRISENOX [Suspect]
     Indication: ACUTE PROMYELOCYTIC LEUKAEMIA
     Dosage: INTRAVENOUS
     Route: 042
     Dates: start: 20080915, end: 20080919
  3. ZAVEDOS [Concomitant]

REACTIONS (7)
  - ATELECTASIS [None]
  - CATHETER RELATED INFECTION [None]
  - INTERSTITIAL LUNG DISEASE [None]
  - NEUTROPENIA [None]
  - PULMONARY EMBOLISM [None]
  - SEPSIS [None]
  - THROMBOSIS [None]
